FAERS Safety Report 6714309-X (Version None)
Quarter: 2010Q2

REPORT INFORMATION
  Report Type: 
  Country: None (occurrence: None)
  Receive Date: 20100506
  Receipt Date: 20100427
  Transmission Date: 20101027
  Serious: Yes (Hospitalization, Other)
  Sender: FDA-Public Use
  Company Number: GR-ABBOTT-09P-066-0586331-01

PATIENT
  Sex: Male
  Weight: 65 kg

DRUGS (8)
  1. HUMIRA [Suspect]
     Indication: RHEUMATOID ARTHRITIS
     Route: 058
     Dates: start: 20041005, end: 20090720
  2. MEDROL [Concomitant]
     Indication: RHEUMATOID ARTHRITIS
     Dates: start: 19670101
  3. IDEOS [Concomitant]
     Indication: STEROID THERAPY
     Dosage: 500 MG + 400 MG
     Dates: start: 20040227
  4. LOFRYL [Concomitant]
     Indication: PERIPHERAL ARTERIAL OCCLUSIVE DISEASE
     Dates: start: 20070101
  5. PLAVIX [Concomitant]
     Indication: PERIPHERAL ARTERIAL OCCLUSIVE DISEASE
     Dates: start: 20071001
  6. PROCORALAN [Concomitant]
     Indication: HYPERTENSION
     Dates: start: 20080701
  7. ZYLOPRIM [Concomitant]
     Indication: HYPERTENSION
     Dates: start: 20080701
  8. HUMIRA [Concomitant]
     Indication: RHEUMATOID ARTHRITIS
     Route: 058

REACTIONS (1)
  - MULTIPLE MYELOMA [None]
